FAERS Safety Report 6334410-2 (Version None)
Quarter: 2009Q3

REPORT INFORMATION
  Report Type: 
  Country: None (occurrence: None)
  Receive Date: 20090831
  Receipt Date: 20071130
  Transmission Date: 20100115
  Serious: Yes (Other)
  Sender: FDA-Public Use
  Company Number: US-ASTRAZENECA-2006UW11404

PATIENT
  Age: 16087 Day
  Sex: Female

DRUGS (13)
  1. SEROQUEL [Suspect]
     Indication: DEPRESSION
     Route: 048
     Dates: start: 20020101
  2. SEROQUEL [Suspect]
     Indication: ANXIETY
     Route: 048
     Dates: start: 20020101
  3. SEROQUEL [Suspect]
     Indication: BIPOLAR DISORDER
     Route: 048
     Dates: start: 20020101
  4. SEROQUEL [Suspect]
     Dosage: 25, 100
     Route: 048
     Dates: start: 20030128
  5. SEROQUEL [Suspect]
     Dosage: 25, 100
     Route: 048
     Dates: start: 20030128
  6. SEROQUEL [Suspect]
     Dosage: 25, 100
     Route: 048
     Dates: start: 20030128
  7. PAXIL [Concomitant]
     Dates: start: 20011204
  8. HUMULIN R [Concomitant]
     Dosage: 75 MG IN MORNING, 85 AT NIGHT
  9. CELEXA [Concomitant]
     Dosage: 40
     Dates: start: 20020128
  10. NEURONTIN [Concomitant]
     Dosage: 300
     Dates: start: 20020128
  11. ZOLOFT [Concomitant]
     Dates: start: 20000901
  12. LEXAPRO [Concomitant]
     Dates: start: 20041215
  13. KLONOPIN [Concomitant]
     Dates: start: 20041215

REACTIONS (3)
  - DIABETES MELLITUS [None]
  - DIABETIC DERMOPATHY [None]
  - DIABETIC NEUROPATHY [None]
